FAERS Safety Report 9477874 (Version 1)
Quarter: 2013Q3

REPORT INFORMATION
  Report Type: Spontaneous
  Country: US (occurrence: None)
  Receive Date: 20130826
  Receipt Date: 20130826
  Transmission Date: 20140515
  Serious: Yes (Life-Threatening, Hospitalization)
  Sender: FDA-Public Use
  Company Number: None

PATIENT
  Age: 76 Year
  Sex: Male
  Weight: 62.6 kg

DRUGS (2)
  1. MORPHINE [Suspect]
     Indication: PAIN
     Route: 050
     Dates: start: 20130821, end: 20130821
  2. MORPHINE [Suspect]
     Indication: BACK PAIN
     Route: 050
     Dates: start: 20130821, end: 20130821

REACTIONS (5)
  - Hypertension [None]
  - Tachycardia [None]
  - Tonic clonic movements [None]
  - Product compounding quality issue [None]
  - Incorrect dose administered [None]
